FAERS Safety Report 20868196 (Version 1)
Quarter: 2022Q2

REPORT INFORMATION
  Report Type: Spontaneous
  Country: CN (occurrence: CN)
  Receive Date: 20220524
  Receipt Date: 20220524
  Transmission Date: 20220721
  Serious: Yes (Hospitalization)
  Sender: FDA-Public Use
  Company Number: CN-NOVARTISPH-NVSC2022CN117208

PATIENT
  Age: 37 Year
  Sex: Female
  Weight: 59 kg

DRUGS (6)
  1. OXCARBAZEPINE [Suspect]
     Active Substance: OXCARBAZEPINE
     Indication: Epilepsy
     Dosage: 1 DOSAGE FORM, BID
     Route: 048
     Dates: start: 20190218, end: 20190310
  2. COMPOUND GLYCYRRHIZIN [Concomitant]
     Indication: Product used for unknown indication
     Dosage: 250 ML, QD, 160 MG + 0.9% 250ML IVGTT QD
     Route: 042
  3. PHOSPHOLIPID [Concomitant]
     Active Substance: PHOSPHOLIPID
     Indication: Product used for unknown indication
     Dosage: 100 ML, QD, 10ML + 5% GS 100ML IVGTT QD
     Route: 065
  4. GLUTATHIONE [Concomitant]
     Active Substance: GLUTATHIONE
     Indication: Product used for unknown indication
     Dosage: 100 ML, QD, 1.2G + 0.9% NS 100ML IVGTT QD
     Route: 065
  5. SILYBIN [Concomitant]
     Indication: Liver disorder
     Dosage: 2 DOSAGE FORM, TID
     Route: 048
  6. SILYBIN [Concomitant]
     Indication: Enzyme inhibition

REACTIONS (1)
  - Hepatocellular injury [Recovering/Resolving]

NARRATIVE: CASE EVENT DATE: 20190223
